FAERS Safety Report 23335490 (Version 1)
Quarter: 2023Q4

REPORT INFORMATION
  Report Type: Other
  Country: TR (occurrence: None)
  Receive Date: 20231225
  Receipt Date: 20231225
  Transmission Date: 20240109
  Serious: Yes (Other)
  Sender: FDA-Public Use
  Company Number: TR-ROCHE-3479360

PATIENT

DRUGS (2)
  1. BEVACIZUMAB [Suspect]
     Active Substance: BEVACIZUMAB
     Indication: Neuroendocrine carcinoma metastatic
     Route: 065
  2. TEMOZOLOMIDE [Suspect]
     Active Substance: TEMOZOLOMIDE
     Indication: Neuroendocrine carcinoma metastatic
     Route: 065

REACTIONS (29)
  - Lymphocyte count decreased [Unknown]
  - Stomatitis [Unknown]
  - Blood bilirubin increased [Unknown]
  - Anal fistula [Unknown]
  - Pruritus [Unknown]
  - Hypertension [Unknown]
  - Anaemia [Unknown]
  - Platelet count decreased [Unknown]
  - Neutrophil count decreased [Unknown]
  - Fatigue [Unknown]
  - Nausea [Unknown]
  - Vomiting [Unknown]
  - Constipation [Unknown]
  - Headache [Unknown]
  - Diarrhoea [Unknown]
  - Decreased appetite [Unknown]
  - Abdominal pain [Unknown]
  - Epistaxis [Unknown]
  - Pyrexia [Unknown]
  - Proteinuria [Unknown]
  - Dyspnoea [Unknown]
  - Rash [Unknown]
  - Blood alkaline phosphatase increased [Unknown]
  - Aspartate aminotransferase increased [Unknown]
  - Alanine aminotransferase increased [Unknown]
  - Haemorrhage [Unknown]
  - Thrombosis [Unknown]
  - Embolism [Unknown]
  - Dehydration [Unknown]
